FAERS Safety Report 14785165 (Version 2)
Quarter: 2018Q4

REPORT INFORMATION
  Report Type: Report from Study
  Country: ES (occurrence: ES)
  Receive Date: 20180420
  Receipt Date: 20181011
  Transmission Date: 20190204
  Serious: Yes (Hospitalization)
  Sender: FDA-Public Use
  Company Number: ES-ASTRAZENECA-2018SE51821

PATIENT
  Age: 26988 Day
  Sex: Female
  Weight: 78 kg

DRUGS (16)
  1. HIBOR [Concomitant]
     Active Substance: BEMIPARIN SODIUM
     Route: 058
     Dates: start: 20160709, end: 20180114
  2. FENTANYL. [Concomitant]
     Active Substance: FENTANYL
     Dosage: EVERY 48 HOURS
     Route: 003
     Dates: start: 20171204
  3. METAMIZOLE [Concomitant]
     Active Substance: METAMIZOLE
     Route: 048
     Dates: start: 20170208
  4. TAGRISSO [Suspect]
     Active Substance: OSIMERTINIB
     Indication: NON-SMALL CELL LUNG CANCER
     Route: 048
     Dates: start: 20151214, end: 20180412
  5. HIBOR [Concomitant]
     Active Substance: BEMIPARIN SODIUM
     Route: 003
     Dates: start: 20160609, end: 20160708
  6. HIBOR [Concomitant]
     Active Substance: BEMIPARIN SODIUM
     Route: 058
     Dates: start: 20180115
  7. FENTANYL CITRATE. [Concomitant]
     Active Substance: FENTANYL CITRATE
     Route: 055
     Dates: start: 20170322
  8. METOCLOPRAMIDE HYDROCHLORIDE. [Concomitant]
     Active Substance: METOCLOPRAMIDE HYDROCHLORIDE
     Dosage: AS REQUIRED
     Route: 048
     Dates: start: 20170503
  9. LORAZEPAM. [Concomitant]
     Active Substance: LORAZEPAM
     Route: 048
     Dates: start: 2015
  10. PREGABALIN. [Concomitant]
     Active Substance: PREGABALIN
     Route: 048
     Dates: start: 20170208
  11. TRAMADOL. [Concomitant]
     Active Substance: TRAMADOL
     Route: 048
     Dates: start: 20161228
  12. ACECLOFENAC [Concomitant]
     Active Substance: ACECLOFENAC
     Route: 048
     Dates: start: 20170208
  13. LOPERAMIDE [Concomitant]
     Active Substance: LOPERAMIDE
     Dosage: AS REQUIRED
     Route: 048
     Dates: start: 20160714
  14. GLAAN LACTOCAPIL VITAMIN SUPPLEMENT [Concomitant]
     Route: 048
     Dates: start: 20170503
  15. DIAZEPAM. [Concomitant]
     Active Substance: DIAZEPAM
     Route: 048
     Dates: start: 20170208
  16. OXYCODONE [Concomitant]
     Active Substance: OXYCODONE
     Route: 048
     Dates: start: 20170208

REACTIONS (1)
  - Pericardial effusion [Recovering/Resolving]

NARRATIVE: CASE EVENT DATE: 20180115
